FAERS Safety Report 13402434 (Version 1)
Quarter: 2017Q2

REPORT INFORMATION
  Report Type: Spontaneous
  Country: FR (occurrence: FR)
  Receive Date: 20170404
  Receipt Date: 20170404
  Transmission Date: 20170830
  Serious: Yes (Life-Threatening)
  Sender: FDA-Public Use
  Company Number: PHHY2017FR047821

PATIENT
  Age: 54 Year
  Sex: Female

DRUGS (10)
  1. ZELITREX [Concomitant]
     Active Substance: VALACYCLOVIR HYDROCHLORIDE
     Indication: PROPHYLAXIS
     Dosage: UNK
     Route: 048
     Dates: start: 201205
  2. NILEVAR [Concomitant]
     Active Substance: NORETHANDROLONE
     Indication: BONE MARROW FAILURE
     Dosage: UNK
     Route: 048
     Dates: start: 2012, end: 201311
  3. REVOLADE [Suspect]
     Active Substance: ELTROMBOPAG
     Indication: BONE MARROW FAILURE
     Dosage: UNK
     Route: 048
     Dates: start: 201302, end: 20170110
  4. BACTRIM [Concomitant]
     Active Substance: SULFAMETHOXAZOLE\TRIMETHOPRIM
     Indication: PROPHYLAXIS
     Dosage: UNK
     Route: 048
     Dates: start: 201205
  5. TERCIAN [Concomitant]
     Active Substance: CYAMEMAZINE
     Indication: PRODUCT USED FOR UNKNOWN INDICATION
     Dosage: 15 DRP, BID
     Route: 048
     Dates: start: 201205, end: 20170110
  6. ZYVOXID [Concomitant]
     Active Substance: LINEZOLID
     Indication: PSEUDOMONAS INFECTION
     Route: 065
  7. EXJADE [Concomitant]
     Active Substance: DEFERASIROX
     Indication: BONE MARROW FAILURE
     Dosage: 500 MG, BID
     Route: 048
     Dates: start: 201311, end: 201603
  8. PREDNISOLONE. [Concomitant]
     Active Substance: PREDNISOLONE
     Indication: PROPHYLAXIS
     Dosage: UNK
     Route: 048
     Dates: start: 201205, end: 20170110
  9. GRANOCYTE [Suspect]
     Active Substance: LENOGRASTIM
     Indication: BONE MARROW FAILURE
     Dosage: UNK
     Route: 058
     Dates: start: 201205, end: 20170110
  10. NOXAFIL [Concomitant]
     Active Substance: POSACONAZOLE
     Indication: PROPHYLAXIS
     Dosage: UNK
     Route: 048
     Dates: start: 201205

REACTIONS (1)
  - Acute myeloid leukaemia [Not Recovered/Not Resolved]

NARRATIVE: CASE EVENT DATE: 20170111
